FAERS Safety Report 4311298-2 (Version None)
Quarter: 2004Q1

REPORT INFORMATION
  Report Type: 
  Country: None (occurrence: None)
  Receive Date: 20040304
  Receipt Date: 20040224
  Transmission Date: 20041129
  Serious: Yes (Death, Hospitalization)
  Sender: FDA-Public Use
  Company Number: FR-GLAXOSMITHKLINE-B0324326A

PATIENT
  Age: 76 Year
  Sex: Male

DRUGS (12)
  1. AUGMENTIN [Suspect]
     Indication: BRONCHIAL INFECTION
     Dosage: 1G TWICE PER DAY
     Route: 042
     Dates: start: 20040112, end: 20040117
  2. ALDACTONE [Suspect]
     Dosage: 12.5MG PER DAY
     Route: 048
     Dates: end: 20040112
  3. LOVENOX [Suspect]
     Dosage: 1UNIT PER DAY
     Route: 058
     Dates: start: 20040112, end: 20040120
  4. COVERSYL [Suspect]
     Dosage: 4MG PER DAY
     Route: 048
     Dates: end: 20040112
  5. CORDARONE [Suspect]
     Dosage: 200MG SEE DOSAGE TEXT
     Route: 048
     Dates: end: 20040125
  6. KREDEX [Suspect]
     Dosage: 12.5MG TWICE PER DAY
     Route: 048
     Dates: end: 20040112
  7. LASILIX [Concomitant]
  8. LEVOTHYROXINE SODIUM [Concomitant]
  9. DIAFUSOR [Concomitant]
  10. LORAZEPAM [Concomitant]
  11. DAFALGAN [Concomitant]
     Dates: end: 20040114
  12. DIANTALVIC [Concomitant]
     Dates: start: 20040114, end: 20040117

REACTIONS (11)
  - BILIRUBIN CONJUGATED INCREASED [None]
  - BONE PAIN [None]
  - CYTOLYTIC HEPATITIS [None]
  - GAMMA-GLUTAMYLTRANSFERASE INCREASED [None]
  - HEPATIC ENZYME INCREASED [None]
  - HEPATIC FAILURE [None]
  - HEPATIC FIBROSIS [None]
  - HEPATIC PAIN [None]
  - HEPATOCELLULAR DAMAGE [None]
  - MULTIPLE MYELOMA [None]
  - OCULAR ICTERUS [None]
